FAERS Safety Report 9504484 (Version 2)
Quarter: 2014Q2

REPORT INFORMATION
  Report Type: Report from Study
  Country: GB (occurrence: GB)
  Receive Date: 20130906
  Receipt Date: 20140616
  Transmission Date: 20141212
  Serious: Yes (Death, Hospitalization)
  Sender: FDA-Public Use
  Company Number: GB-ROCHE-1270464

PATIENT
  Sex: Male
  Weight: 74 kg

DRUGS (2)
  1. RITUXIMAB [Suspect]
     Indication: RHEUMATOID ARTHRITIS
     Dosage: LAST DOSE PRIOR TO SAE ON 13/NOV/2012
     Route: 065
     Dates: start: 20121030
  2. METHOTREXATE [Concomitant]

REACTIONS (2)
  - Pancreatic neuroendocrine tumour [Fatal]
  - Small cell lung cancer metastatic [Unknown]
